FAERS Safety Report 5730220-5 (Version None)
Quarter: 2008Q2

REPORT INFORMATION
  Report Type: 
  Country: None (occurrence: None)
  Receive Date: 20080507
  Receipt Date: 20080422
  Transmission Date: 20081010
  Serious: Yes (Hospitalization, Other)
  Sender: FDA-Public Use
  Company Number: US-AMGEN-US275775

PATIENT
  Sex: Male

DRUGS (2)
  1. EPOGEN [Suspect]
     Indication: DIALYSIS
     Route: 058
     Dates: start: 20080101
  2. IRON [Concomitant]

REACTIONS (2)
  - HOSPITALISATION [None]
  - THERAPEUTIC RESPONSE DECREASED [None]
